FAERS Safety Report 14815404 (Version 4)
Quarter: 2018Q2

REPORT INFORMATION
  Report Type: Spontaneous
  Country: US (occurrence: US)
  Receive Date: 20180426
  Receipt Date: 20180518
  Transmission Date: 20180711
  Serious: Yes (Hospitalization, Other)
  Sender: FDA-Public Use
  Company Number: US-PFIZER INC-2018168275

PATIENT
  Age: 54 Year
  Sex: Female
  Weight: 55.33 kg

DRUGS (1)
  1. IBRANCE [Suspect]
     Active Substance: PALBOCICLIB
     Indication: BREAST CANCER METASTATIC
     Dosage: 75 MG, CYCLIC (DAYS 1 TO 21, EVERY 28 DAYS)
     Route: 048
     Dates: start: 20180416, end: 2018

REACTIONS (12)
  - Sepsis [Unknown]
  - Purulent discharge [Unknown]
  - Drug dose omission [Unknown]
  - Decreased appetite [Unknown]
  - Hypotension [Unknown]
  - Nausea [Unknown]
  - Vomiting [Unknown]
  - Blood glucose increased [Unknown]
  - Post procedural haemorrhage [Unknown]
  - Endocarditis [Unknown]
  - Hypophagia [Unknown]
  - Insomnia [Unknown]

NARRATIVE: CASE EVENT DATE: 2018
